FAERS Safety Report 6305554-6 (Version None)
Quarter: 2009Q3

REPORT INFORMATION
  Report Type: 
  Country: None (occurrence: None)
  Receive Date: 20090811
  Receipt Date: 20090803
  Transmission Date: 20100115
  Serious: Yes (Hospitalization)
  Sender: FDA-Public Use
  Company Number: US-GILEAD-2009-0023459

PATIENT
  Sex: Male

DRUGS (8)
  1. LETAIRIS [Suspect]
     Indication: PULMONARY ARTERIAL HYPERTENSION
     Route: 048
     Dates: start: 20080803
  2. REVATIO [Concomitant]
  3. LASIX [Concomitant]
  4. ZOLOFT [Concomitant]
  5. LACTULOSE [Concomitant]
  6. METHADONE [Concomitant]
  7. KLOR-CON [Concomitant]
  8. NEXIUM [Concomitant]

REACTIONS (3)
  - AMMONIA INCREASED [None]
  - BLOOD POTASSIUM DECREASED [None]
  - UNEVALUABLE EVENT [None]
